FAERS Safety Report 14186816 (Version 1)
Quarter: 2017Q4

REPORT INFORMATION
  Report Type: Report from Study
  Country: None (occurrence: CA)
  Receive Date: 20171114
  Receipt Date: 20171114
  Transmission Date: 20180321
  Serious: Yes (Other)
  Sender: FDA-Public Use
  Company Number: CA-ABBVIE-17K-028-2159714-00

PATIENT
  Sex: Female

DRUGS (1)
  1. HUMIRA [Suspect]
     Active Substance: ADALIMUMAB
     Indication: CROHN^S DISEASE
     Route: 058
     Dates: start: 20150609, end: 2017

REACTIONS (5)
  - Constipation [Recovering/Resolving]
  - Incarcerated hernia [Recovering/Resolving]
  - Intestinal stenosis [Not Recovered/Not Resolved]
  - Intestinal obstruction [Recovering/Resolving]
  - Stomal hernia [Recovering/Resolving]

NARRATIVE: CASE EVENT DATE: 2017
